FAERS Safety Report 23486575 (Version 1)
Quarter: 2024Q1

REPORT INFORMATION
  Report Type: Spontaneous
  Country: US (occurrence: None)
  Receive Date: 20240205
  Receipt Date: 20240205
  Transmission Date: 20240410
  Serious: Yes (Hospitalization)
  Sender: FDA-Public Use
  Company Number: None

PATIENT
  Sex: Male

DRUGS (1)
  1. NUTROPIN AQ [Suspect]
     Active Substance: SOMATROPIN
     Indication: Short stature
     Dosage: 20 MG/2ML SUBCUTANEOUS? ?INJECT 4.6MG UNDER THE SKIN (SUBCUTANEOUS INJECTION) DAILY?
     Route: 058
     Dates: start: 20201229

REACTIONS (2)
  - Therapy interrupted [None]
  - Hospitalisation [None]
